FAERS Safety Report 8226657-5 (Version None)
Quarter: 2012Q1

REPORT INFORMATION
  Report Type: 
  Country: None (occurrence: None)
  Receive Date: 20120322
  Receipt Date: 20120314
  Transmission Date: 20120608
  Serious: Yes (Hospitalization)
  Sender: FDA-Public Use
  Company Number: US-BRISTOL-MYERS SQUIBB COMPANY-15567852

PATIENT
  Age: 79 Year
  Sex: Male

DRUGS (4)
  1. HYDROCHLOROTHIAZIDE [Concomitant]
  2. CLONAZEPAM [Concomitant]
  3. TAPAZOLE [Concomitant]
  4. IPILIMUMAB [Suspect]
     Indication: MALIGNANT MELANOMA
     Dosage: NO. OF COURSES-4
     Route: 042
     Dates: start: 20101117, end: 20110118

REACTIONS (1)
  - DIARRHOEA [None]
